FAERS Safety Report 12868473 (Version 1)
Quarter: 2016Q4

REPORT INFORMATION
  Report Type: Spontaneous
  Country: US (occurrence: US)
  Receive Date: 20161020
  Receipt Date: 20161020
  Transmission Date: 20170207
  Serious: No
  Sender: FDA-Public Use
  Company Number: US-ROCHE-1650538

PATIENT
  Sex: Male

DRUGS (3)
  1. TOBRAMYCIN AEROSOL [Concomitant]
     Indication: CYSTIC FIBROSIS
     Route: 065
  2. ENZYMES [Concomitant]
     Indication: CYSTIC FIBROSIS
  3. PULMOZYME [Suspect]
     Active Substance: DORNASE ALFA
     Indication: CYSTIC FIBROSIS
     Route: 055

REACTIONS (4)
  - Bronchospasm [Unknown]
  - Influenza like illness [Recovered/Resolved]
  - Pyrexia [Recovered/Resolved]
  - Chills [Recovered/Resolved]
